FAERS Safety Report 15265225 (Version 1)
Quarter: 2018Q3

REPORT INFORMATION
  Report Type: Spontaneous
  Country: US (occurrence: US)
  Receive Date: 20180810
  Receipt Date: 20180810
  Transmission Date: 20181010
  Serious: No
  Sender: FDA-Public Use
  Company Number: US-MYLANLABS-2018M1059673

PATIENT
  Sex: Female
  Weight: 4.9 kg

DRUGS (1)
  1. METHYLPHENIDATE HYDROCHLORIDE EXTENDED?RELEASE TABLETS USP [Suspect]
     Active Substance: METHYLPHENIDATE HYDROCHLORIDE
     Indication: ATTENTION DEFICIT/HYPERACTIVITY DISORDER
     Dosage: UNK
     Route: 065

REACTIONS (3)
  - Product solubility abnormal [Recovering/Resolving]
  - Impulsive behaviour [Recovering/Resolving]
  - Drug ineffective [Recovering/Resolving]
